FAERS Safety Report 21284736 (Version 1)
Quarter: 2022Q3

REPORT INFORMATION
  Report Type: Spontaneous
  Country: AR (occurrence: AR)
  Receive Date: 20220902
  Receipt Date: 20220902
  Transmission Date: 20221027
  Serious: Yes (Other)
  Sender: FDA-Public Use
  Company Number: AR-PFIZER INC-PV202200048806

PATIENT
  Age: 68 Year
  Sex: Female

DRUGS (1)
  1. ENBREL [Suspect]
     Active Substance: ETANERCEPT
     Indication: Rheumatoid arthritis
     Dosage: 50 MG, WEEKLY
     Route: 065
     Dates: start: 20060909

REACTIONS (6)
  - Rheumatoid arthritis [Not Recovered/Not Resolved]
  - Gait inability [Unknown]
  - Loss of personal independence in daily activities [Unknown]
  - Pain [Unknown]
  - Influenza [Unknown]
  - Anaemia [Not Recovered/Not Resolved]
